FAERS Safety Report 6639534-8 (Version None)
Quarter: 2010Q1

REPORT INFORMATION
  Report Type: 
  Country: None (occurrence: None)
  Receive Date: 20100318
  Receipt Date: 20100304
  Transmission Date: 20100710
  Serious: Yes (Other)
  Sender: FDA-Public Use
  Company Number: US-RANBAXY-2010RR-32412

PATIENT
  Age: 61 Year
  Sex: Male

DRUGS (7)
  1. CIPROFLOXACIN [Suspect]
  2. VENLAFAXINE [Suspect]
     Indication: MAJOR DEPRESSION
     Dosage: 75 MG, BID
  3. VENLAFAXINE [Suspect]
     Dosage: 100 MG, BID
  4. METHADONE HCL [Suspect]
     Indication: BACK PAIN
  5. HYDROMORPHONE HCL [Concomitant]
     Indication: BACK PAIN
  6. OXYCODONE HCL [Concomitant]
     Indication: BACK PAIN
  7. METOCLOPRAMIDE [Concomitant]

REACTIONS (2)
  - DRUG INTERACTION [None]
  - SEROTONIN SYNDROME [None]
